FAERS Safety Report 6141226-9 (Version None)
Quarter: 2009Q1

REPORT INFORMATION
  Report Type: 
  Country: None (occurrence: None)
  Receive Date: 20090331
  Receipt Date: 20090319
  Transmission Date: 20090719
  Serious: Yes (Hospitalization, Other)
  Sender: FDA-Public Use
  Company Number: US025453

PATIENT
  Age: 25 Year
  Sex: Male

DRUGS (26)
  1. TRISENOX [Suspect]
     Indication: ACUTE PROMYELOCYTIC LEUKAEMIA
     Dosage: 10 MG (10 MG, 1 IN 1 D), INTRAVENOUS DRIP
     Route: 041
     Dates: start: 20090121, end: 20090205
  2. PHENYTOIN [Concomitant]
  3. TOSULFOXACIN TOSILATE (TOSUFLOXACIN TOSILATE) [Concomitant]
  4. OXETHAZAINE (OXETACAINE) [Concomitant]
  5. LANSOPRAZOLE [Concomitant]
  6. VALPROATE SODIUM [Concomitant]
  7. SULFAMETHOXAZOLE AND TRIMETHOPRIM [Concomitant]
  8. ALENDRONATE SODIUM HYDRATE 9ALENDRONATE SODIUM) [Concomitant]
  9. BROTIZOLAM (BROTIZOLAM) [Concomitant]
  10. CLINDAMYCIN PHOSPHATE [Concomitant]
  11. OFLOXACIN (OFLOXACIN) [Concomitant]
  12. FENTANYL-100 [Concomitant]
  13. SODIUM HYALURONATE (HYALURONATE SODIUM) [Concomitant]
  14. DIPHENHYDRAMINE HCL [Concomitant]
  15. PARENTERAL NUTRITION (SOLUTIONS FOR PARENTERAL NUTRITION) [Concomitant]
  16. GRANISETRON HYDROCHLORIDE (GRANISETRON HYDROCHLORIDE) [Concomitant]
  17. ACETAMINOPHEN [Concomitant]
  18. ASPIRIN [Concomitant]
  19. METOCLOPRAMIDE [Concomitant]
  20. SENNOSIDE (SENNOSIDE A+B) [Concomitant]
  21. PENTAZOCINE HYDROCHLORIDE (PENTAZOCINE HYDROCHLORIDE) [Concomitant]
  22. MAGNESIUM OXIDE (MAGNESIUM OXIDE) [Concomitant]
  23. TAZOBACTAN/ PIPERACILLIN (PIPERACILLIN SODIUM, TAZOBACTAM) [Concomitant]
  24. MIXED AMINO ACID CARBOHYDRATE ELECTROLYTE VITAMIN COMBINE (AMINO ACIDS [Concomitant]
  25. VITAMIN B COMPLEX (PYRIDOXINE HYDROCHLORIDE, THIAMINE HYDROCHLORIDE, R [Concomitant]
  26. MANGANESE CHLORIDE / ZINC SULFATE COMBINED DRUG (MANGANESE CHLORIDE) [Concomitant]

REACTIONS (7)
  - CARDIAC TAMPONADE [None]
  - CARDIOVASCULAR INSUFFICIENCY [None]
  - GASTROINTESTINAL HAEMORRHAGE [None]
  - HAEMOGLOBIN DECREASED [None]
  - HEPATIC ENZYME INCREASED [None]
  - PERICARDIAL EFFUSION [None]
  - PLEURAL EFFUSION [None]
